FAERS Safety Report 19832052 (Version 3)
Quarter: 2021Q4

REPORT INFORMATION
  Report Type: Spontaneous
  Country: US (occurrence: US)
  Receive Date: 20210915
  Receipt Date: 20211018
  Transmission Date: 20220303
  Serious: No
  Sender: FDA-Public Use
  Company Number: US-STRONGBRIDGE BIOPHARMA-2021-STR-000308

PATIENT
  Sex: Male

DRUGS (3)
  1. KEVEYIS [Suspect]
     Active Substance: DICHLORPHENAMIDE
     Indication: Product used for unknown indication
     Dosage: 50 MG, BID
     Route: 048
     Dates: start: 20210818
  2. KEVEYIS [Suspect]
     Active Substance: DICHLORPHENAMIDE
     Dosage: 25 MG, BID
     Route: 048
     Dates: start: 20210903
  3. KEVEYIS [Suspect]
     Active Substance: DICHLORPHENAMIDE
     Dosage: 50 MG, BID
     Route: 048

REACTIONS (7)
  - Dyspnoea exertional [Recovered/Resolved]
  - Hypersomnia [Recovered/Resolved]
  - Nasopharyngitis [Recovered/Resolved]
  - Condition aggravated [Unknown]
  - Therapeutic product effect incomplete [Unknown]
  - Wrong technique in product usage process [Recovered/Resolved]
  - Intentional dose omission [Unknown]
